FAERS Safety Report 9688626 (Version 5)
Quarter: 2020Q3

REPORT INFORMATION
  Report Type: Spontaneous
  Country: BR (occurrence: BR)
  Receive Date: 20131114
  Receipt Date: 20200729
  Transmission Date: 20201103
  Serious: Yes (Other)
  Sender: FDA-Public Use
  Company Number: BR-PFIZER INC-2013314534

PATIENT
  Age: 63 Year
  Sex: Female

DRUGS (6)
  1. FRONTAL [Suspect]
     Active Substance: ALPRAZOLAM
     Indication: PANIC DISORDER
     Dosage: 1.5 MG, DAILY
     Route: 048
     Dates: end: 201702
  2. FRONTAL [Suspect]
     Active Substance: ALPRAZOLAM
     Indication: ANXIETY
     Dosage: 1MG, DAILY (HALF TABLET (0.5MG) AT LUNCH TIME AND ANOTHER HALF TABLET (0.5MG) AT NIGHT)
     Route: 048
     Dates: start: 201702
  3. FRONTAL [Suspect]
     Active Substance: ALPRAZOLAM
     Dosage: 0.25 MG, AS NEEDED
  4. FRONTAL [Suspect]
     Active Substance: ALPRAZOLAM
     Dosage: 0.5 MG, DAILY
  5. LEXAPRO [Suspect]
     Active Substance: ESCITALOPRAM OXALATE
     Indication: DEPRESSION
  6. LEXAPRO [Suspect]
     Active Substance: ESCITALOPRAM OXALATE
     Indication: BEHAVIOUR DISORDER

REACTIONS (19)
  - Loss of consciousness [Unknown]
  - Palpitations [Unknown]
  - Extrasystoles [Unknown]
  - Retinal tear [Unknown]
  - Bradycardia [Unknown]
  - Somnolence [Unknown]
  - Orthostatic hypotension [Unknown]
  - Headache [Unknown]
  - Agitation [Unknown]
  - Migraine [Unknown]
  - Feeling abnormal [Unknown]
  - Anxiety [Unknown]
  - Fear [Unknown]
  - Confusional state [Unknown]
  - Drug ineffective [Unknown]
  - Cough [Unknown]
  - Photopsia [Unknown]
  - Vitreous disorder [Unknown]
  - Dry mouth [Unknown]

NARRATIVE: CASE EVENT DATE: 2011
